FAERS Safety Report 18423815 (Version 1)
Quarter: 2020Q4

REPORT INFORMATION
  Report Type: Spontaneous
  Country: JP (occurrence: JP)
  Receive Date: 20201024
  Receipt Date: 20201024
  Transmission Date: 20210114
  Serious: Yes (Other)
  Sender: FDA-Public Use
  Company Number: JP-AMGEN-JPNSP2020169742

PATIENT

DRUGS (1)
  1. OTEZLA [Suspect]
     Active Substance: APREMILAST
     Indication: PRODUCT USED FOR UNKNOWN INDICATION
     Dosage: 30 MG TWICE A DAILY AND ONCE IN THE MORNING ON ALTERNATE BASIS
     Route: 048

REACTIONS (3)
  - Adverse drug reaction [Unknown]
  - Renal impairment [Unknown]
  - Off label use [Unknown]
